FAERS Safety Report 6858444-4 (Version None)
Quarter: 2010Q3

REPORT INFORMATION
  Report Type: 
  Country: None (occurrence: None)
  Receive Date: 20100719
  Receipt Date: 20080207
  Transmission Date: 20110219
  Serious: No
  Sender: FDA-Public Use
  Company Number: US-PFIZER INC-2008012571

PATIENT
  Sex: Female
  Weight: 68.2 kg

DRUGS (7)
  1. CHANTIX [Suspect]
     Indication: SMOKING CESSATION THERAPY
     Dates: start: 20080201
  2. LUNESTA [Concomitant]
     Indication: SLEEP DISORDER
  3. CELEXA [Concomitant]
  4. DOXAPRAM [Concomitant]
  5. XANAX [Concomitant]
     Indication: ANXIETY
  6. XANAX [Concomitant]
     Indication: PANIC ATTACK
  7. LORTAB [Concomitant]
     Indication: NECK PAIN

REACTIONS (2)
  - MYALGIA [None]
  - SKELETAL INJURY [None]
